FAERS Safety Report 22946131 (Version 2)
Quarter: 2023Q4

REPORT INFORMATION
  Report Type: Report from Study
  Country: CA (occurrence: CA)
  Receive Date: 20230915
  Receipt Date: 20231114
  Transmission Date: 20240109
  Serious: Yes (Other)
  Sender: FDA-Public Use
  Company Number: CA-JNJFOC-20230908796

PATIENT
  Age: 51 Year
  Sex: Female
  Weight: 89 kg

DRUGS (1)
  1. REMICADE [Suspect]
     Active Substance: INFLIXIMAB
     Indication: Crohn^s disease
     Dosage: EXPIRATION DATE: 01-FEB-2026
     Route: 042
     Dates: start: 20111209, end: 20230920

REACTIONS (2)
  - Lupus-like syndrome [Unknown]
  - Abdominal pain [Not Recovered/Not Resolved]

NARRATIVE: CASE EVENT DATE: 20230822
